FAERS Safety Report 5122916-3 (Version None)
Quarter: 2006Q4

REPORT INFORMATION
  Report Type: 
  Country: None (occurrence: None)
  Receive Date: 20061004
  Receipt Date: 20061004
  Transmission Date: 20070319
  Serious: No
  Sender: FDA-Public Use
  Company Number: None

PATIENT
  Age: 35 Year
  Sex: Female
  Weight: 72.5755 kg

DRUGS (3)
  1. VANCOMYCIN [Suspect]
     Indication: CARDIAC ANEURYSM
     Dosage: 1ST DOSE
     Dates: start: 20060914
  2. VANCOMYCIN [Suspect]
     Indication: PYREXIA
     Dosage: 1ST DOSE
     Dates: start: 20060914
  3. GENTAMICIN [Concomitant]

REACTIONS (3)
  - INFUSION RELATED REACTION [None]
  - PRURITUS [None]
  - THERAPY NON-RESPONDER [None]
